FAERS Safety Report 6805135-1 (Version None)
Quarter: 2010Q2

REPORT INFORMATION
  Report Type: 
  Country: None (occurrence: None)
  Receive Date: 20100628
  Receipt Date: 20070823
  Transmission Date: 20101027
  Serious: No
  Sender: FDA-Public Use
  Company Number: US-PFIZER INC-2007069139

PATIENT
  Age: 61 Year

DRUGS (2)
  1. CADUET [Suspect]
  2. ALL OTHER THERAPEUTIC PRODUCTS [Concomitant]
     Indication: ARTHRITIS

REACTIONS (1)
  - MYALGIA [None]
